FAERS Safety Report 9153731 (Version 1)
Quarter: 2013Q1

REPORT INFORMATION
  Report Type: Spontaneous
  Country: US (occurrence: None)
  Receive Date: 20130204
  Receipt Date: 20130204
  Transmission Date: 20140127
  Serious: Yes (Other)
  Sender: FDA-Public Use
  Company Number: 1579410

PATIENT
  Age: 69 Year
  Sex: Female

DRUGS (4)
  1. CARBOPLATIN [Suspect]
     Indication: OVARIAN CANCER RECURRENT
  2. DOXORUBICIN HYDROCHLORIDE [Suspect]
     Indication: OVARIAN CANCER RECURRENT
  3. CISPLATIN [Suspect]
     Indication: OVARIAN CANCER RECURRENT
     Route: 033
  4. PACLITAXEL [Concomitant]

REACTIONS (1)
  - Renal failure chronic [None]
